FAERS Safety Report 5267291-9 (Version None)
Quarter: 2007Q1

REPORT INFORMATION
  Report Type: 
  Country: None (occurrence: None)
  Receive Date: 20070316
  Receipt Date: 20070308
  Transmission Date: 20070707
  Serious: Yes (Hospitalization)
  Sender: FDA-Public Use
  Company Number: ES-GLAXOSMITHKLINE-B0457819A

PATIENT
  Age: 58 Year
  Sex: Female
  Weight: 71 kg

DRUGS (5)
  1. GW679769 [Suspect]
     Route: 048
     Dates: start: 20070131, end: 20070202
  2. DEXAMETHASONE [Suspect]
     Dosage: 8MG CYCLIC
     Route: 042
     Dates: start: 20070131
  3. ZOFRAN [Suspect]
     Dosage: 8MG CYCLIC
     Route: 048
     Dates: start: 20070131
  4. DOXORUBICIN HCL [Suspect]
     Indication: BREAST CANCER
     Dosage: 100MG CYCLIC
     Route: 042
     Dates: start: 20070130
  5. CYCLOPHOSPHAMIDE [Suspect]
     Indication: BREAST CANCER
     Dosage: 1000MG CYCLIC
     Route: 042
     Dates: start: 20070131

REACTIONS (2)
  - NAUSEA [None]
  - VOMITING [None]
